FAERS Safety Report 6694408-1 (Version None)
Quarter: 2010Q2

REPORT INFORMATION
  Report Type: 
  Country: None (occurrence: None)
  Receive Date: 20100421
  Receipt Date: 20100405
  Transmission Date: 20101027
  Serious: No
  Sender: FDA-Public Use
  Company Number: APP201000199

PATIENT
  Age: 68 Year
  Sex: Female
  Weight: 83.0083 kg

DRUGS (17)
  1. VANCOMYCIN HYDROCHLORIDE [Suspect]
     Indication: DRUG USE FOR UNKNOWN INDICATION
     Dosage: 1000 MG, ONCE, INTRAVENOUS
     Route: 042
     Dates: start: 20100224, end: 20100224
  2. BLINDED STUDY DRUG (VALETHAMATE BROMIDE) [Suspect]
     Indication: THROMBOSIS PROPHYLAXIS
     Dosage: 2.5 MG, 4 IN 1 D, ORAL
     Route: 048
  3. TELMISARTAN [Concomitant]
  4. INSULIN [Concomitant]
  5. ASPIRIN [Concomitant]
  6. LASIX [Concomitant]
  7. CLONIDINE [Concomitant]
  8. RENEXA [Concomitant]
  9. MAXZIDE [Concomitant]
  10. CARVEDILOL [Concomitant]
  11. NORVASC [Concomitant]
  12. POTASSIUM [Concomitant]
  13. SYNTHROID [Concomitant]
  14. NITROGLYCERIN [Concomitant]
  15. ROSUVASTATIN [Concomitant]
  16. LEXAPRO [Concomitant]
  17. XANAX [Concomitant]

REACTIONS (2)
  - ACUTE RESPIRATORY FAILURE [None]
  - CHRONIC OBSTRUCTIVE PULMONARY DISEASE [None]
